FAERS Safety Report 14733042 (Version 2)
Quarter: 2018Q2

REPORT INFORMATION
  Report Type: Spontaneous
  Country: US (occurrence: US)
  Receive Date: 20180409
  Receipt Date: 20180502
  Transmission Date: 20180711
  Serious: Yes (Other)
  Sender: FDA-Public Use
  Company Number: US-AXELLIA-001533

PATIENT
  Age: 40 Year
  Sex: Male

DRUGS (3)
  1. TYLENOL [Suspect]
     Active Substance: ACETAMINOPHEN
     Indication: PYREXIA
     Dosage: USED AT 1.5-3 G/D FOR A 25-DAY PERIOD
     Route: 048
     Dates: start: 2017, end: 2017
  2. VANCOMYCIN [Suspect]
     Active Substance: VANCOMYCIN
     Indication: STAPHYLOCOCCAL INFECTION
     Route: 042
     Dates: start: 20171017, end: 2017
  3. RIFAMPICIN [Suspect]
     Active Substance: RIFAMPIN
     Indication: BACTERIAL INFECTION
     Dosage: IN 2 DIVIDED DOSES FOR THE AFOREMENTIONED 4-DAY PERIOD
     Dates: start: 20171022, end: 20171026

REACTIONS (1)
  - Liver injury [Recovered/Resolved]

NARRATIVE: CASE EVENT DATE: 20171026
